FAERS Safety Report 15406056 (Version 7)
Quarter: 2020Q4

REPORT INFORMATION
  Report Type: Spontaneous
  Country: US (occurrence: US)
  Receive Date: 20180920
  Receipt Date: 20201124
  Transmission Date: 20210113
  Serious: No
  Sender: FDA-Public Use
  Company Number: US-PFIZER INC-2018376596

PATIENT
  Age: 69 Year
  Sex: Female
  Weight: 49.44 kg

DRUGS (4)
  1. ESTRING [Suspect]
     Active Substance: ESTRADIOL
     Indication: VULVOVAGINAL DISCOMFORT
  2. ESTRING [Suspect]
     Active Substance: ESTRADIOL
     Indication: UTERINE PROLAPSE
  3. ESTRING [Suspect]
     Active Substance: ESTRADIOL
     Indication: BLADDER PROLAPSE
  4. ESTRING [Suspect]
     Active Substance: ESTRADIOL
     Indication: VULVOVAGINAL DRYNESS
     Dosage: UNK

REACTIONS (2)
  - Drug ineffective [Recovered/Resolved]
  - Weight increased [Unknown]
